FAERS Safety Report 22635793 (Version 1)
Quarter: 2023Q2

REPORT INFORMATION
  Report Type: Spontaneous
  Country: US (occurrence: None)
  Receive Date: 20230620
  Receipt Date: 20230620
  Transmission Date: 20230721
  Serious: No
  Sender: FDA-Public Use
  Company Number: None

PATIENT
  Sex: Female

DRUGS (14)
  1. TEMOZOLOMIDE [Suspect]
     Active Substance: TEMOZOLOMIDE
     Indication: Brain neoplasm malignant
     Dosage: FREQUENCY : DAILY;?
     Route: 048
  2. TEMOZOLOMIDE [Suspect]
     Active Substance: TEMOZOLOMIDE
     Indication: Brain neoplasm malignant
     Dosage: FREQUENCY : DAILY;?
     Route: 048
  3. KEFLEX [Concomitant]
     Active Substance: CEPHALEXIN
  4. CRANBERRY [Concomitant]
     Active Substance: CRANBERRY
  5. KEPPRA [Concomitant]
     Active Substance: LEVETIRACETAM
  6. MACROBID [Concomitant]
     Active Substance: NITROFURANTOIN\NITROFURANTOIN MONOHYDRATE
  7. OLMESARTAN [Concomitant]
     Active Substance: OLMESARTAN
  8. ZOFRAN [Concomitant]
     Active Substance: ONDANSETRON HYDROCHLORIDE
  9. OXYBUTYNIN [Concomitant]
     Active Substance: OXYBUTYNIN
  10. PREMARIN [Concomitant]
     Active Substance: ESTROGENS, CONJUGATED
  11. SODIUM CHLORIDE [Concomitant]
     Active Substance: SODIUM CHLORIDE
  12. SYNTHROID [Concomitant]
     Active Substance: LEVOTHYROXINE SODIUM
  13. VITAMIN D2 [Concomitant]
     Active Substance: ERGOCALCIFEROL
  14. ZOLOFT [Concomitant]
     Active Substance: SERTRALINE HYDROCHLORIDE

REACTIONS (1)
  - Emergency care [None]
